FAERS Safety Report 19202254 (Version 2)
Quarter: 2021Q4

REPORT INFORMATION
  Report Type: Report from Study
  Country: None (occurrence: CO)
  Receive Date: 20210430
  Receipt Date: 20211012
  Transmission Date: 20220304
  Serious: Yes (Hospitalization)
  Sender: FDA-Public Use
  Company Number: CO-ABBVIE-21P-036-3881352-00

PATIENT
  Age: 35 Year
  Sex: Female
  Weight: 56.7 kg

DRUGS (10)
  1. ELSUBRUTINIB [Suspect]
     Active Substance: ELSUBRUTINIB
     Indication: Systemic lupus erythematosus
     Route: 048
     Dates: start: 20201110, end: 20210401
  2. ELSUBRUTINIB [Suspect]
     Active Substance: ELSUBRUTINIB
     Route: 048
     Dates: start: 20210411
  3. UPADACITINIB [Suspect]
     Active Substance: UPADACITINIB
     Indication: Systemic lupus erythematosus
     Route: 048
     Dates: start: 20201110, end: 20210401
  4. UPADACITINIB [Suspect]
     Active Substance: UPADACITINIB
     Route: 048
     Dates: start: 20210411
  5. CHLOROQUINE [Concomitant]
     Active Substance: CHLOROQUINE
     Indication: Systemic lupus erythematosus
     Route: 048
     Dates: start: 20140917
  6. AZATHIOPRINE [Concomitant]
     Active Substance: AZATHIOPRINE
     Indication: Systemic lupus erythematosus
     Route: 048
     Dates: start: 20170301
  7. PREDNISOLONE [Concomitant]
     Active Substance: PREDNISOLONE
     Indication: Systemic lupus erythematosus
     Route: 048
     Dates: start: 20200521
  8. FLUNARIZINE [Concomitant]
     Active Substance: FLUNARIZINE
     Indication: Migraine
     Route: 048
     Dates: start: 2019
  9. METOPROLOL [Concomitant]
     Active Substance: METOPROLOL
     Indication: Sinus tachycardia
     Route: 048
     Dates: start: 20200920
  10. ACETAMINOPHEN [Concomitant]
     Active Substance: ACETAMINOPHEN
     Indication: Arthralgia
     Dosage: PRN
     Route: 048
     Dates: start: 202005

REACTIONS (1)
  - Urinary tract infection [Recovered/Resolved]

NARRATIVE: CASE EVENT DATE: 20210402
